FAERS Safety Report 16663545 (Version 1)
Quarter: 2019Q3

REPORT INFORMATION
  Report Type: Report from Study
  Country: US (occurrence: US)
  Receive Date: 20190802
  Receipt Date: 20190802
  Transmission Date: 20191004
  Serious: No
  Sender: FDA-Public Use
  Company Number: US-EXELIXIS-CABO-19020303

PATIENT
  Age: 63 Year
  Sex: Male

DRUGS (1)
  1. CABOMETYX [Suspect]
     Active Substance: CABOZANTINIB S-MALATE
     Indication: RENAL CANCER
     Dosage: 40 MG, UNK (2 TABLETS EVERY OTHER DAY, ALTERNATING WITH 1 TABLET EVERY OTHER DAY)
     Route: 048
     Dates: start: 20181115, end: 20190507

REACTIONS (5)
  - Aphonia [Unknown]
  - Diarrhoea [Unknown]
  - Dysphagia [Unknown]
  - Weight decreased [Unknown]
  - Hypertension [Unknown]

NARRATIVE: CASE EVENT DATE: 201811
